FAERS Safety Report 5248908-1 (Version None)
Quarter: 2007Q1

REPORT INFORMATION
  Report Type: 
  Country: None (occurrence: None)
  Receive Date: 20070228
  Receipt Date: 20070220
  Transmission Date: 20070707
  Serious: Yes (Other)
  Sender: FDA-Public Use
  Company Number: US-JNJFOC-20070103344

PATIENT
  Age: 64 Year
  Sex: Female
  Weight: 75.3 kg

DRUGS (3)
  1. REMICADE [Suspect]
     Indication: PSORIASIS
     Route: 042
  2. TYLENOL [Concomitant]
     Indication: PREMEDICATION
     Route: 048
  3. BENADRYL [Concomitant]
     Indication: PREMEDICATION

REACTIONS (5)
  - CHILLS [None]
  - HEADACHE [None]
  - HYPOTENSION [None]
  - INFUSION RELATED REACTION [None]
  - VOMITING [None]
